FAERS Safety Report 6151987-0 (Version None)
Quarter: 2009Q2

REPORT INFORMATION
  Report Type: 
  Country: None (occurrence: None)
  Receive Date: 20090409
  Receipt Date: 20090409
  Transmission Date: 20091009
  Serious: No
  Sender: FDA-Public Use
  Company Number: None

PATIENT
  Sex: Male
  Weight: 76.2043 kg

DRUGS (1)
  1. AZITHROMYCIN [Suspect]
     Indication: LUNG INFECTION
     Dosage: TID 250MG DAILY ORAL
     Route: 048
     Dates: start: 20080501

REACTIONS (7)
  - EPISTAXIS [None]
  - GASTRIC ULCER [None]
  - GASTROINTESTINAL HAEMORRHAGE [None]
  - INTERNATIONAL NORMALISED RATIO INCREASED [None]
  - MOUTH HAEMORRHAGE [None]
  - PULMONARY HAEMORRHAGE [None]
  - RECTAL HAEMORRHAGE [None]
